FAERS Safety Report 17846423 (Version 1)
Quarter: 2020Q2

REPORT INFORMATION
  Report Type: Spontaneous
  Country: US (occurrence: US)
  Receive Date: 20200601
  Receipt Date: 20200601
  Transmission Date: 20200714
  Serious: No
  Sender: FDA-Public Use
  Company Number: None

PATIENT
  Sex: Male

DRUGS (1)
  1. SIMILESEN DRY EYE RELIEF [Suspect]
     Active Substance: HOMEOPATHICS
     Dosage: ?          QUANTITY:1 DROP(S);?

REACTIONS (4)
  - Instillation site pain [None]
  - Eye pain [None]
  - Therapy cessation [None]
  - Headache [None]

NARRATIVE: CASE EVENT DATE: 20200528
